FAERS Safety Report 24376329 (Version 1)
Quarter: 2024Q3

REPORT INFORMATION
  Report Type: Spontaneous
  Country: US (occurrence: US)
  Receive Date: 20240930
  Receipt Date: 20240930
  Transmission Date: 20241017
  Serious: Yes (Other)
  Sender: PADAGIS
  Company Number: US-PADAGIS-2024PAD01521

PATIENT

DRUGS (5)
  1. CLOBETASOL PROPIONATE [Suspect]
     Active Substance: CLOBETASOL PROPIONATE
     Indication: Cellulitis
     Dosage: UNK
     Route: 061
  2. CEPHALEXIN [Concomitant]
     Active Substance: CEPHALEXIN
     Indication: Cellulitis
     Dosage: 500 MG, BID
     Route: 065
  3. IPILIMUMAB;NIVOLUMAB [Concomitant]
     Indication: Metastatic renal cell carcinoma
     Dosage: 4 CYCLES OF 3 MG/KG NIVOLUMAB AND 1 MG/KG IPILIMUMAB, MAINTENANCE DOSE 480 MG NIVOLUMAB EVERY 4 WEEK
     Route: 065
  4. DEXAMETHASONE [Concomitant]
     Active Substance: DEXAMETHASONE
     Indication: Neoplasm malignant
     Dosage: 2 MG, BID
     Route: 065
  5. DEXAMETHASONE [Concomitant]
     Active Substance: DEXAMETHASONE
     Dosage: 4 MG, BID
     Route: 065

REACTIONS (3)
  - Scedosporium infection [Unknown]
  - Therapy partial responder [None]
  - Product use in unapproved indication [Unknown]
